FAERS Safety Report 9671622 (Version 1)
Quarter: 2013Q4

REPORT INFORMATION
  Report Type: Spontaneous
  Country: US (occurrence: None)
  Receive Date: 20131105
  Receipt Date: 20131105
  Transmission Date: 20140711
  Serious: No
  Sender: FDA-Public Use
  Company Number: None

PATIENT
  Age: 35 Year
  Sex: Female
  Weight: 55.8 kg

DRUGS (3)
  1. LIBRIUM [Suspect]
     Dosage: 50 MG (2 CAPS OF 25MG) QID, ORAL
     Route: 048
     Dates: start: 20131102, end: 20131103
  2. BENADRYL [Concomitant]
  3. LEXAPRO [Concomitant]

REACTIONS (2)
  - Dizziness [None]
  - Feeling abnormal [None]
